FAERS Safety Report 25927361 (Version 1)
Quarter: 2025Q4

REPORT INFORMATION
  Report Type: Spontaneous
  Country: GB (occurrence: GB)
  Receive Date: 20251015
  Receipt Date: 20251015
  Transmission Date: 20260118
  Serious: Yes (Hospitalization, Other)
  Sender: NOVO NORDISK
  Company Number: GB-NOVOPROD-1538375

PATIENT
  Sex: Female

DRUGS (3)
  1. SEMAGLUTIDE [Suspect]
     Active Substance: SEMAGLUTIDE
     Indication: Product used for unknown indication
     Dosage: UNK
  2. LEVOTHYROXINE [Concomitant]
     Active Substance: LEVOTHYROXINE
     Indication: Hypothyroidism
     Dosage: 25 ?G, QD
  3. PREGABALIN [Concomitant]
     Active Substance: PREGABALIN
     Indication: Back pain
     Dosage: 50 MG, QD

REACTIONS (1)
  - Drug-induced liver injury [Recovered/Resolved]
